FAERS Safety Report 4416465-5 (Version None)
Quarter: 2004Q3

REPORT INFORMATION
  Report Type: 
  Country: None (occurrence: None)
  Receive Date: 20040730
  Receipt Date: 20040719
  Transmission Date: 20050211
  Serious: Yes (Death)
  Sender: FDA-Public Use
  Company Number: 04H-163-0267592-00

PATIENT
  Age: 59 Year
  Sex: Male

DRUGS (6)
  1. ETOMIDATE INJECTION (ETOMIDATE ) (ETOMIDATE) [Suspect]
     Indication: POISONING
     Dosage: INSULIN PUMP
  2. LAUDANOSINE [Suspect]
  3. CAFFEINE [Concomitant]
  4. HYDROXYZINE [Concomitant]
  5. PROMETHAZINE [Concomitant]
  6. METOCLOPRAMIDE [Concomitant]

REACTIONS (3)
  - DRUG TOXICITY [None]
  - MURDER [None]
  - OVERDOSE [None]
